FAERS Safety Report 24457111 (Version 2)
Quarter: 2024Q4

REPORT INFORMATION
  Report Type: Spontaneous
  Country: US (occurrence: US)
  Receive Date: 20241018
  Receipt Date: 20241022
  Transmission Date: 20250115
  Serious: Yes (Death, Hospitalization, Other)
  Sender: RANBAXY
  Company Number: US-SUN PHARMACEUTICAL INDUSTRIES LTD-2024R1-473787

PATIENT
  Age: 28 Year
  Sex: Female

DRUGS (7)
  1. DOXORUBICIN [Suspect]
     Active Substance: DOXORUBICIN
     Indication: Chemotherapy
     Dosage: UNK
     Route: 065
  2. VINCRISTINE [Suspect]
     Active Substance: VINCRISTINE
     Indication: Chemotherapy
     Dosage: UNK
     Route: 065
  3. ACTINOMYCIN D [Suspect]
     Active Substance: DACTINOMYCIN
     Indication: Chemotherapy
     Dosage: UNK
     Route: 065
  4. BINIMETINIB [Suspect]
     Active Substance: BINIMETINIB
     Indication: Chemotherapy
     Dosage: UNK
     Route: 065
     Dates: start: 202108
  5. CYCLOPHOSPHAMIDE [Suspect]
     Active Substance: CYCLOPHOSPHAMIDE
     Indication: Chemotherapy
     Dosage: UNK
     Route: 065
  6. ENCORAFENIB [Suspect]
     Active Substance: ENCORAFENIB
     Indication: Chemotherapy
     Dosage: UNK
     Route: 065
     Dates: start: 202108
  7. TOCILIZUMAB [Suspect]
     Active Substance: TOCILIZUMAB
     Indication: Chemotherapy
     Dosage: UNK
     Route: 065

REACTIONS (8)
  - Hyperbilirubinaemia [Fatal]
  - Multiple organ dysfunction syndrome [Fatal]
  - Metastases to liver [Fatal]
  - Abdominal pain [Unknown]
  - Drug resistance [Unknown]
  - Nausea [Unknown]
  - Obstruction gastric [Unknown]
  - Vomiting [Unknown]
